FAERS Safety Report 8846747 (Version 1)
Quarter: 2012Q4

REPORT INFORMATION
  Report Type: Spontaneous
  Country: US (occurrence: None)
  Receive Date: 20121018
  Receipt Date: 20121018
  Transmission Date: 20130627
  Serious: Yes (Other)
  Sender: FDA-Public Use
  Company Number: None

PATIENT
  Age: 58 Year
  Sex: Male
  Weight: 131.54 kg

DRUGS (1)
  1. METHYLPREDNISOLONE [Suspect]
     Indication: INTERVERTEBRAL DISC ANNULAR TEAR
     Route: 008
     Dates: start: 20120418, end: 20120418

REACTIONS (4)
  - Foot deformity [None]
  - Localised infection [None]
  - Pain [None]
  - Ocular hyperaemia [None]
